FAERS Safety Report 6732762-2 (Version None)
Quarter: 2010Q2

REPORT INFORMATION
  Report Type: 
  Country: None (occurrence: None)
  Receive Date: 20100519
  Receipt Date: 20100510
  Transmission Date: 20101027
  Serious: Yes (Other)
  Sender: FDA-Public Use
  Company Number: US-AMGEN-QUU406356

PATIENT
  Sex: Female

DRUGS (7)
  1. ENBREL [Suspect]
     Indication: RHEUMATOID ARTHRITIS
     Route: 058
     Dates: start: 20051101, end: 20091201
  2. SYNTHROID [Concomitant]
     Dates: start: 20020101
  3. UNSPECIFIED ANTIHYPERTENSIVE AGENT [Concomitant]
  4. CELEBREX [Concomitant]
     Dates: start: 20040101
  5. ACETAMNINOPHEN W/DIPHENHYDRAMINE [Concomitant]
  6. BONIVA [Concomitant]
     Dates: start: 20050101
  7. NADOLOL [Concomitant]
     Dates: start: 20020101

REACTIONS (1)
  - AQUAGENIC PRURITUS [None]
